FAERS Safety Report 16707374 (Version 2)
Quarter: 2019Q3

REPORT INFORMATION
  Report Type: Spontaneous
  Country: PT (occurrence: PT)
  Receive Date: 20190815
  Receipt Date: 20190830
  Transmission Date: 20191004
  Serious: Yes (Hospitalization, Disabling)
  Sender: FDA-Public Use
  Company Number: PT-PFIZER INC-2019346664

PATIENT
  Age: 50 Year
  Sex: Female

DRUGS (10)
  1. ILOPROST. [Suspect]
     Active Substance: ILOPROST
     Indication: VASODILATATION
     Dosage: MONTHLY, ELASTOMERIC BOMB, Q1MON
     Route: 042
  2. BOSENTAN. [Suspect]
     Active Substance: BOSENTAN
     Indication: VASODILATION PROCEDURE
     Dosage: UNK
     Route: 048
  3. CYCLOPHOSPHAMIDE. [Concomitant]
     Active Substance: CYCLOPHOSPHAMIDE
     Dosage: UNK
  4. NIFEDIPINE. [Suspect]
     Active Substance: NIFEDIPINE
     Indication: VASODILATION PROCEDURE
     Dosage: UNK
  5. SILDENAFIL CITRATE. [Suspect]
     Active Substance: SILDENAFIL CITRATE
     Indication: VASODILATION PROCEDURE
  6. NITROGLYCERIN. [Suspect]
     Active Substance: NITROGLYCERIN
     Indication: VASODILATION PROCEDURE
     Dosage: UNK
  7. VENTAVIS [Suspect]
     Active Substance: ILOPROST
     Indication: PULMONARY FIBROSIS
  8. PENTOXIFYLLINE. [Suspect]
     Active Substance: PENTOXIFYLLINE
     Indication: VASODILATION PROCEDURE
     Dosage: UNK
  9. SILDENAFIL CITRATE. [Suspect]
     Active Substance: SILDENAFIL CITRATE
     Indication: PULMONARY ARTERIAL HYPERTENSION
     Dosage: UNK
  10. VENTAVIS [Suspect]
     Active Substance: ILOPROST
     Indication: VASODILATION PROCEDURE
     Dosage: UNK

REACTIONS (3)
  - Sepsis [Unknown]
  - Haematotoxicity [Unknown]
  - Pneumonia [Unknown]
